FAERS Safety Report 17999981 (Version 1)
Quarter: 2020Q3

REPORT INFORMATION
  Report Type: Spontaneous
  Country: AU (occurrence: AU)
  Receive Date: 20200709
  Receipt Date: 20200709
  Transmission Date: 20201103
  Serious: Yes (Other)
  Sender: FDA-Public Use
  Company Number: AU-ALKEM LABORATORIES LIMITED-AU-ALKEM-2020-03350

PATIENT
  Age: 30 Year
  Sex: Male

DRUGS (5)
  1. ATORVASTATIN CALCIUM. [Suspect]
     Active Substance: ATORVASTATIN CALCIUM
     Indication: PRODUCT USED FOR UNKNOWN INDICATION
     Dosage: UNK
     Route: 065
  2. AMISULPRIDE [Suspect]
     Active Substance: AMISULPRIDE
     Indication: PRODUCT USED FOR UNKNOWN INDICATION
     Dosage: UNK
     Route: 065
  3. ARIPIPRAZOLE. [Suspect]
     Active Substance: ARIPIPRAZOLE
     Indication: PRODUCT USED FOR UNKNOWN INDICATION
     Dosage: UNK
     Route: 065
  4. OLANZAPINE. [Suspect]
     Active Substance: OLANZAPINE
     Indication: PRODUCT USED FOR UNKNOWN INDICATION
     Dosage: UNK
     Route: 065
  5. CLOZARIL [Suspect]
     Active Substance: CLOZAPINE
     Indication: PRODUCT USED FOR UNKNOWN INDICATION
     Dosage: UNK
     Route: 065

REACTIONS (22)
  - Sinus tachycardia [Unknown]
  - Somnolence [Unknown]
  - Pulmonary valve incompetence [Unknown]
  - Aspartate aminotransferase increased [Unknown]
  - Diastolic dysfunction [Unknown]
  - Blood creatine phosphokinase increased [Unknown]
  - C-reactive protein increased [Unknown]
  - Hyperlipidaemia [Unknown]
  - Urinary incontinence [Unknown]
  - Schizophrenia [Unknown]
  - Ventricular hypokinesia [Unknown]
  - Blood creatinine decreased [Unknown]
  - Troponin increased [Unknown]
  - Cardiomyopathy [Unknown]
  - Aggression [Unknown]
  - Ejection fraction decreased [Unknown]
  - Hypercholesterolaemia [Unknown]
  - Alanine aminotransferase increased [Unknown]
  - Blood pressure increased [Unknown]
  - Mitral valve incompetence [Unknown]
  - Drug ineffective [Unknown]
  - Product dose omission issue [Unknown]
